FAERS Safety Report 15305144 (Version 1)
Quarter: 2018Q3

REPORT INFORMATION
  Report Type: Spontaneous
  Country: US (occurrence: US)
  Receive Date: 20180810
  Receipt Date: 20180810
  Transmission Date: 20181010
  Serious: No
  Sender: FDA-Public Use
  Company Number: None

PATIENT
  Age: 40 Year
  Sex: Male
  Weight: 105.75 kg

DRUGS (1)
  1. TRIUMEQ [Suspect]
     Active Substance: ABACAVIR SULFATE\DOLUTEGRAVIR SODIUM\LAMIVUDINE
     Indication: HIV INFECTION
     Dosage: ?          OTHER STRENGTH:600/50/300MG G GRA;QUANTITY:1 DF DOSAGE FORM;?
     Route: 048
     Dates: start: 20180801, end: 20180810

REACTIONS (4)
  - Pyrexia [None]
  - Oropharyngeal pain [None]
  - Cough [None]
  - Malaise [None]

NARRATIVE: CASE EVENT DATE: 20180810
